FAERS Safety Report 7768906-3 (Version None)
Quarter: 2011Q3

REPORT INFORMATION
  Report Type: 
  Country: None (occurrence: None)
  Receive Date: 20110922
  Receipt Date: 20110306
  Transmission Date: 20111222
  Serious: No
  Sender: FDA-Public Use
  Company Number: US-ASTRAZENECA-2011SE12607

PATIENT
  Age: 305 Month
  Sex: Female
  Weight: 81.6 kg

DRUGS (3)
  1. CITALOPRAM HYDROBROMIDE [Concomitant]
     Indication: DEPRESSION
  2. SEROQUEL XR [Suspect]
     Indication: BIPOLAR DISORDER
     Route: 048
     Dates: start: 20110221, end: 20110228
  3. ABILIFY [Concomitant]
     Indication: DEPRESSION

REACTIONS (3)
  - SOCIAL AVOIDANT BEHAVIOUR [None]
  - DRUG DOSE OMISSION [None]
  - ANTISOCIAL BEHAVIOUR [None]
